FAERS Safety Report 21453265 (Version 2)
Quarter: 2022Q4

REPORT INFORMATION
  Report Type: Report from Study
  Country: US (occurrence: US)
  Receive Date: 20221013
  Receipt Date: 20221117
  Transmission Date: 20230112
  Serious: Yes (Other)
  Sender: FDA-Public Use
  Company Number: US-BRISTOL-MYERS SQUIBB COMPANY-2022-115774

PATIENT
  Age: 70 Year
  Sex: Male
  Weight: 97.52 kg

DRUGS (3)
  1. REVLIMID [Suspect]
     Active Substance: LENALIDOMIDE
     Indication: Plasma cell myeloma
     Dosage: FOR 28 DAYS?FREQUENCY: TAKE 1 CAPSULE DAILY FOR 28 DAYS. SWALLOW CAPSULES WHOLE WITH 8OZ OF WATER AR
     Route: 048
     Dates: start: 20170704
  2. METOPROLOL [Suspect]
     Active Substance: METOPROLOL
     Indication: Product used for unknown indication
     Route: 065
  3. DEXAMETHASONE [Concomitant]
     Active Substance: DEXAMETHASONE
     Indication: Product used for unknown indication
     Dosage: 0.5MG/5ML LIQ?0.5MG/5ML SOLUTION
     Route: 065

REACTIONS (4)
  - Heart rate decreased [Unknown]
  - Prostatic disorder [Unknown]
  - Bronchitis [Recovered/Resolved]
  - Diarrhoea [Unknown]

NARRATIVE: CASE EVENT DATE: 20220801
